FAERS Safety Report 17515909 (Version 2)
Quarter: 2020Q2

REPORT INFORMATION
  Report Type: Report from Study
  Country: JP (occurrence: JP)
  Receive Date: 20200309
  Receipt Date: 20200424
  Transmission Date: 20200713
  Serious: Yes (Hospitalization)
  Sender: FDA-Public Use
  Company Number: JP-GILEAD-2018-0359565

PATIENT
  Age: 41 Year
  Sex: Male

DRUGS (14)
  1. BENECID [Concomitant]
     Active Substance: PROBENECID
  2. LOCOID [Concomitant]
     Active Substance: HYDROCORTISONE BUTYRATE
     Route: 003
     Dates: start: 20170531
  3. AMOXICILLIN HYDRATE [Concomitant]
     Active Substance: AMOXICILLIN
  4. LOXOPROFEN [Concomitant]
     Active Substance: LOXOPROFEN
     Route: 065
     Dates: start: 20170824, end: 201710
  5. BROTIZOLAM [Concomitant]
     Active Substance: BROTIZOLAM
  6. FEBURIC [Concomitant]
     Active Substance: FEBUXOSTAT
  7. NIZORAL [Concomitant]
     Active Substance: KETOCONAZOLE
     Route: 003
     Dates: start: 20170531
  8. LENDORMIN [Concomitant]
     Active Substance: BROTIZOLAM
  9. LYRICA [Concomitant]
     Active Substance: PREGABALIN
  10. ZITHROMAC [Concomitant]
     Active Substance: AZITHROMYCIN DIHYDRATE
     Indication: PROPHYLAXIS
     Route: 065
     Dates: start: 20170421, end: 201708
  11. BELSOMRA [Concomitant]
     Active Substance: SUVOREXANT
  12. ELVITEGRAVIR/COBICISTAT/EMTRICITABINE/TENOFOVIR ALAFENAMIDE [Suspect]
     Active Substance: COBICISTAT\ELVITEGRAVIR\EMTRICITABINE\TENOFOVIR
     Indication: HIV INFECTION
     Dosage: 1 DOSAGE FORM, QD
     Route: 048
     Dates: start: 20170606, end: 20180115
  13. EMTRICITABINE/TENOFOVIR ALAFENAMIDE [Suspect]
     Active Substance: EMTRICITABINE\TENOFOVIR
     Indication: HIV INFECTION
     Dosage: 1 DOSAGE FORM, QD
     Route: 048
     Dates: start: 20180116, end: 20190522
  14. TIVICAY [Suspect]
     Active Substance: DOLUTEGRAVIR SODIUM
     Indication: HIV INFECTION
     Dosage: 1 DOSAGE FORM, QD
     Route: 048
     Dates: start: 20180116, end: 20190522

REACTIONS (7)
  - Dyslipidaemia [Recovering/Resolving]
  - Occipital neuralgia [Recovered/Resolved]
  - Ureterolithiasis [Recovered/Resolved]
  - Seborrhoeic dermatitis [Recovered/Resolved]
  - Herpes zoster [Recovered/Resolved]
  - Tenosynovitis [Recovering/Resolving]
  - Therapeutic product effect incomplete [Recovered/Resolved]

NARRATIVE: CASE EVENT DATE: 201706
